FAERS Safety Report 4718529-5 (Version None)
Quarter: 2005Q3

REPORT INFORMATION
  Report Type: 
  Country: None (occurrence: None)
  Receive Date: 20050720
  Receipt Date: 20050709
  Transmission Date: 20060218
  Serious: Yes (Hospitalization, Other)
  Sender: FDA-Public Use
  Company Number: PHEH2005US07829

PATIENT
  Age: 82 Year
  Sex: Male

DRUGS (1)
  1. DIOVAN HCT [Suspect]
     Dosage: UNK, QD

REACTIONS (6)
  - CARDIAC OPERATION [None]
  - CHEST PAIN [None]
  - FALL [None]
  - HAND FRACTURE [None]
  - HEART RATE DECREASED [None]
  - VITAL FUNCTIONS ABNORMAL [None]
